FAERS Safety Report 5078434-4 (Version None)
Quarter: 2006Q3

REPORT INFORMATION
  Report Type: 
  Country: None (occurrence: None)
  Receive Date: 20060811
  Receipt Date: 20060430
  Transmission Date: 20061208
  Serious: Yes (Hospitalization)
  Sender: FDA-Public Use
  Company Number: 2006AP02638

PATIENT
  Age: 26 Year
  Sex: Male

DRUGS (3)
  1. ANAPEINE [Suspect]
     Indication: EPIDURAL ANAESTHESIA
     Route: 008
     Dates: start: 20050119, end: 20050119
  2. MARCAINE [Concomitant]
     Indication: SPINAL ANAESTHESIA
     Route: 029
     Dates: start: 20050119, end: 20050119
  3. FENTANEST [Concomitant]
     Route: 008
     Dates: start: 20050119, end: 20050101

REACTIONS (1)
  - DECUBITUS ULCER [None]
